FAERS Safety Report 4443815-6 (Version None)
Quarter: 2004Q3

REPORT INFORMATION
  Report Type: 
  Country: None (occurrence: None)
  Receive Date: 20040729
  Receipt Date: 20020729
  Transmission Date: 20050211
  Serious: Yes (Other)
  Sender: FDA-Public Use
  Company Number: KII-2002-0004444

PATIENT
  Sex: Male

DRUGS (1)
  1. MS CONTIN [Suspect]

REACTIONS (1)
  - DRUG DEPENDENCE [None]
